FAERS Safety Report 13479035 (Version 2)
Quarter: 2017Q2

REPORT INFORMATION
  Report Type: Spontaneous
  Country: JP (occurrence: JP)
  Receive Date: 20170425
  Receipt Date: 20170615
  Transmission Date: 20170830
  Serious: Yes (Other)
  Sender: FDA-Public Use
  Company Number: JP-JNJFOC-20170310819

PATIENT
  Age: 52 Year
  Sex: Male
  Weight: 63 kg

DRUGS (28)
  1. REMICADE [Suspect]
     Active Substance: INFLIXIMAB
     Indication: CROHN^S DISEASE
     Dosage: 29TH DOSE, 1 IN 1 D
     Route: 042
     Dates: start: 20170124, end: 20170124
  2. PREDONINE [Concomitant]
     Active Substance: PREDNISOLONE
     Route: 065
  3. PREDONINE [Concomitant]
     Active Substance: PREDNISOLONE
     Route: 065
  4. REMICADE [Suspect]
     Active Substance: INFLIXIMAB
     Indication: CROHN^S DISEASE
     Dosage: FIRST DOSE, ONCE A DAY (1 IN 1 D)
     Route: 042
     Dates: start: 20121221
  5. PREDONINE [Concomitant]
     Active Substance: PREDNISOLONE
     Route: 065
     Dates: start: 20020313, end: 20020328
  6. PREDONINE [Concomitant]
     Active Substance: PREDNISOLONE
     Route: 065
     Dates: start: 19960705
  7. IMURAN [Concomitant]
     Active Substance: AZATHIOPRINE
     Indication: CROHN^S DISEASE
     Route: 048
     Dates: start: 20121221, end: 20170221
  8. PREDONINE [Concomitant]
     Active Substance: PREDNISOLONE
     Route: 065
     Dates: start: 20010802, end: 20020110
  9. PREDONINE [Concomitant]
     Active Substance: PREDNISOLONE
     Route: 065
  10. PREDONINE [Concomitant]
     Active Substance: PREDNISOLONE
     Route: 065
  11. PREDONINE [Concomitant]
     Active Substance: PREDNISOLONE
     Route: 065
     Dates: start: 20020110, end: 20020124
  12. PREDONINE [Concomitant]
     Active Substance: PREDNISOLONE
     Route: 065
  13. PREDONINE [Concomitant]
     Active Substance: PREDNISOLONE
     Route: 065
     Dates: start: 199310
  14. PREDONINE [Concomitant]
     Active Substance: PREDNISOLONE
     Route: 065
     Dates: start: 19940202
  15. PENTASA [Concomitant]
     Active Substance: MESALAMINE
     Indication: CROHN^S DISEASE
     Dosage: 3000 MG
     Route: 048
  16. PREDONINE [Concomitant]
     Active Substance: PREDNISOLONE
     Route: 065
  17. PREDONINE [Concomitant]
     Active Substance: PREDNISOLONE
     Route: 065
     Dates: start: 19961004, end: 19961101
  18. PREDONINE [Concomitant]
     Active Substance: PREDNISOLONE
     Route: 065
     Dates: start: 20020329, end: 20020415
  19. PREDONINE [Concomitant]
     Active Substance: PREDNISOLONE
     Route: 065
  20. PREDONINE [Concomitant]
     Active Substance: PREDNISOLONE
     Route: 065
     Dates: start: 20020819, end: 20020901
  21. REMICADE [Suspect]
     Active Substance: INFLIXIMAB
     Indication: CROHN^S DISEASE
     Dosage: 1 IN 1 D
     Route: 042
     Dates: start: 20130524
  22. PREDONINE [Concomitant]
     Active Substance: PREDNISOLONE
     Route: 065
  23. PREDONINE [Concomitant]
     Active Substance: PREDNISOLONE
     Route: 065
     Dates: start: 20020902
  24. LAC-B [Concomitant]
     Active Substance: BIFIDOBACTERIUM SPP.
     Indication: CROHN^S DISEASE
     Route: 048
     Dates: end: 20150414
  25. PREDONINE [Concomitant]
     Active Substance: PREDNISOLONE
     Route: 065
  26. PREDONINE [Concomitant]
     Active Substance: PREDNISOLONE
     Route: 065
  27. PREDONINE [Concomitant]
     Active Substance: PREDNISOLONE
     Route: 065
     Dates: start: 19960405
  28. PREDONINE [Concomitant]
     Active Substance: PREDNISOLONE
     Route: 065
     Dates: start: 19941014

REACTIONS (1)
  - Tuberculosis [Recovering/Resolving]

NARRATIVE: CASE EVENT DATE: 20170218
